FAERS Safety Report 23459987 (Version 2)
Quarter: 2024Q1

REPORT INFORMATION
  Report Type: Report from Study
  Country: TH (occurrence: TH)
  Receive Date: 20240131
  Receipt Date: 20240219
  Transmission Date: 20240409
  Serious: Yes (Life-Threatening, Other)
  Sender: FDA-Public Use
  Company Number: TH-TEVA-VS-3150611

PATIENT
  Sex: Female

DRUGS (1)
  1. PACLITAXEL [Suspect]
     Active Substance: PACLITAXEL
     Indication: Neoplasm malignant
     Dosage: INTRAVENOUS  INFUSION OVER 3H
     Route: 050

REACTIONS (4)
  - Type I hypersensitivity [Unknown]
  - Hypotension [Unknown]
  - Wheezing [Unknown]
  - Bronchospasm [Unknown]
